FAERS Safety Report 21322883 (Version 2)
Quarter: 2022Q4

REPORT INFORMATION
  Report Type: Report from Study
  Country: US (occurrence: US)
  Receive Date: 20220912
  Receipt Date: 20221208
  Transmission Date: 20230113
  Serious: Yes (Other)
  Sender: FDA-Public Use
  Company Number: US-ABBVIE-22K-163-4528890-00

PATIENT
  Age: 72 Year
  Sex: Male

DRUGS (5)
  1. HUMIRA [Suspect]
     Active Substance: ADALIMUMAB
     Indication: Crohn^s disease
     Dosage: CITRATE FREE, EVENT ONSET OF FLUID IN GROIN, TROUBLE WITH GAS, ELEVATED A1C, SEEPAGE AND GAS AND ...
     Route: 058
     Dates: start: 20220120
  2. HUMIRA [Suspect]
     Active Substance: ADALIMUMAB
     Dosage: CITRATE FREE
     Route: 058
  3. PFIZER-BIONTECH COVID-19 VACCINE [Concomitant]
     Active Substance: TOZINAMERAN
     Indication: COVID-19 immunisation
     Dosage: 1ST DOSE, ONE IN ONCE
     Route: 030
     Dates: start: 20210312, end: 20210312
  4. PFIZER-BIONTECH COVID-19 VACCINE [Concomitant]
     Active Substance: TOZINAMERAN
     Indication: COVID-19 immunisation
     Dosage: 2ND DOSE, ONE IN ONCE
     Route: 030
     Dates: start: 20210408, end: 20210408
  5. MODERNA COVID-19 VACCINE [Concomitant]
     Active Substance: ELASOMERAN
     Indication: COVID-19 immunisation
     Dosage: BOOSTER DOSE?ONE IN ONCE
     Route: 030
     Dates: start: 20211124, end: 20211124

REACTIONS (8)
  - Thyroid mass [Not Recovered/Not Resolved]
  - Tremor [Not Recovered/Not Resolved]
  - Fluid retention [Not Recovered/Not Resolved]
  - Lymphoma [Unknown]
  - Secretion discharge [Not Recovered/Not Resolved]
  - Flatulence [Not Recovered/Not Resolved]
  - Muscular weakness [Not Recovered/Not Resolved]
  - Glycosylated haemoglobin increased [Not Recovered/Not Resolved]

NARRATIVE: CASE EVENT DATE: 20220901
